FAERS Safety Report 11277599 (Version 1)
Quarter: 2015Q3

REPORT INFORMATION
  Report Type: Spontaneous
  Country: GB (occurrence: GB)
  Receive Date: 20150716
  Receipt Date: 20150716
  Transmission Date: 20151125
  Serious: Yes (Other)
  Sender: FDA-Public Use
  Company Number: GB-SA-2015SA101281

PATIENT
  Age: 46 Year
  Sex: Female
  Weight: 60 kg

DRUGS (7)
  1. BETAMETHASONE SODIUM PHOSPHATE [Concomitant]
     Active Substance: BETAMETHASONE SODIUM PHOSPHATE
     Dosage: USE AS DIRECTED.
     Route: 065
     Dates: start: 20150427
  2. MONTELUKAST [Concomitant]
     Active Substance: MONTELUKAST SODIUM
     Dosage: AT NIGHT.
     Route: 065
     Dates: start: 20150428
  3. MOMETASONE [Concomitant]
     Active Substance: MOMETASONE
     Dosage: 2 PUFFS DAILY EACH NOSTRIL. DOSE:2 PUFF(S)
     Route: 045
     Dates: start: 20150217, end: 20150226
  4. CETIRIZINE [Concomitant]
     Active Substance: CETIRIZINE HYDROCHLORIDE
     Route: 065
     Dates: start: 20150217
  5. RHINOCORT [Concomitant]
     Active Substance: BUDESONIDE
     Route: 065
     Dates: start: 20150417
  6. TOLTERODINE TARTRATE. [Concomitant]
     Active Substance: TOLTERODINE TARTRATE
     Route: 065
     Dates: start: 20140808
  7. FEXOFENADINE HYDROCHLORIDE. [Suspect]
     Active Substance: FEXOFENADINE HYDROCHLORIDE
     Route: 048
     Dates: start: 20150508, end: 20150508

REACTIONS (10)
  - Malaise [Recovering/Resolving]
  - Dyspnoea [Recovering/Resolving]
  - Dyspnoea [Recovering/Resolving]
  - Musculoskeletal chest pain [Recovering/Resolving]
  - Fatigue [Recovering/Resolving]
  - Trismus [Recovering/Resolving]
  - Pain in jaw [Not Recovered/Not Resolved]
  - Palpitations [Recovering/Resolving]
  - Chest discomfort [Recovering/Resolving]
  - Wheezing [Recovering/Resolving]

NARRATIVE: CASE EVENT DATE: 20150508
